FAERS Safety Report 25935231 (Version 1)
Quarter: 2025Q4

REPORT INFORMATION
  Report Type: Spontaneous
  Country: CA (occurrence: CA)
  Receive Date: 20251017
  Receipt Date: 20251017
  Transmission Date: 20260117
  Serious: Yes (Other)
  Sender: PFIZER
  Company Number: CA-PFIZER INC-202500205239

PATIENT
  Age: 79 Year
  Sex: Female

DRUGS (6)
  1. IXIFI [Suspect]
     Active Substance: INFLIXIMAB-QBTX
     Indication: Crohn^s disease
     Dosage: 400 MG, CYCLIC (Q2,6 WEEKS THEN EVERY 8 WEEKS)
     Route: 042
     Dates: start: 20250528
  2. IXIFI [Suspect]
     Active Substance: INFLIXIMAB-QBTX
     Dosage: INCOMPLETE DOSE, 8 WEEKS (400 MG, Q2,6 WEEKS THEN EVERY 8 WEEKS)
     Route: 042
     Dates: start: 20251015
  3. AZATHIOPRINE [Concomitant]
     Active Substance: AZATHIOPRINE
     Dosage: 500 MG
     Route: 065
     Dates: start: 202411
  4. CANDESARTAN [Concomitant]
     Active Substance: CANDESARTAN
     Dosage: UNK
  5. PREDNISONE [Concomitant]
     Active Substance: PREDNISONE
     Dosage: 40 MG
     Route: 065
     Dates: start: 202411
  6. VITAMIN B12 [Concomitant]
     Active Substance: CYANOCOBALAMIN
     Dosage: UNK

REACTIONS (2)
  - Confusional state [Unknown]
  - Speech disorder [Unknown]

NARRATIVE: CASE EVENT DATE: 20251015
